FAERS Safety Report 8740364 (Version 2)
Quarter: 2012Q4

REPORT INFORMATION
  Report Type: 
  Country: US (occurrence: US)
  Receive Date: 20120823
  Receipt Date: 20120904
  Transmission Date: 20130627
  Serious: No
  Sender: FDA-Public Use
  Company Number: US-009507513-1208USA004002

PATIENT

DRUGS (1)
  1. IMPLANON [Suspect]
     Indication: UTERINE CANCER
     Dosage: UNK
     Route: 059
     Dates: start: 201104

REACTIONS (3)
  - Medical device complication [Not Recovered/Not Resolved]
  - Weight decreased [Unknown]
  - Off label use [Not Recovered/Not Resolved]
